FAERS Safety Report 6863175-0 (Version None)
Quarter: 2010Q3

REPORT INFORMATION
  Report Type: 
  Country: None (occurrence: None)
  Receive Date: 20100721
  Receipt Date: 20100719
  Transmission Date: 20110219
  Serious: Yes (Death, Hospitalization)
  Sender: FDA-Public Use
  Company Number: FR-BRISTOL-MYERS SQUIBB COMPANY-15199631

PATIENT
  Age: 71 Year
  Sex: Male

DRUGS (6)
  1. PRAVIGARD PAC (COPACKAGED) [Suspect]
     Route: 048
     Dates: start: 20080101, end: 20080504
  2. SIMVASTATIN [Suspect]
     Route: 048
     Dates: start: 20070101, end: 20080430
  3. NISIS [Concomitant]
  4. PLAVIX [Concomitant]
  5. KARDEGIC [Concomitant]
  6. METFORMIN [Concomitant]

REACTIONS (5)
  - ATRIAL FIBRILLATION [None]
  - METABOLIC ACIDOSIS [None]
  - RENAL FAILURE ACUTE [None]
  - RHABDOMYOLYSIS [None]
  - TOXIC EPIDERMAL NECROLYSIS [None]
